FAERS Safety Report 12873197 (Version 2)
Quarter: 2017Q1

REPORT INFORMATION
  Report Type: Report from Study
  Country: NZ (occurrence: NZ)
  Receive Date: 20161021
  Receipt Date: 20170216
  Transmission Date: 20170428
  Serious: Yes (Death, Other)
  Sender: FDA-Public Use
  Company Number: NZ-REGENERON PHARMACEUTICALS, INC.-2016-22835

PATIENT

DRUGS (1)
  1. EYLEA [Suspect]
     Active Substance: AFLIBERCEPT
     Indication: NEOVASCULAR AGE-RELATED MACULAR DEGENERATION
     Dosage: 0.05ML LEFT EYE, EVERY 3/12 SINCE 25 FEB 2014 AFTER INITIAL LOADING PHASE. TOTAL NUMBER OF DOSES: 17
     Route: 031
     Dates: start: 20130219, end: 20160802

REACTIONS (1)
  - Myocardial infarction [Fatal]
